FAERS Safety Report 8896631 (Version 2)
Quarter: 2013Q1

REPORT INFORMATION
  Report Type: Spontaneous
  Country: US (occurrence: None)
  Receive Date: 20121101
  Receipt Date: 20121127
  Transmission Date: 20140127
  Serious: Yes (Other)
  Sender: FDA-Public Use
  Company Number: 1210-567

PATIENT
  Age: 81 Year
  Sex: Male

DRUGS (2)
  1. EYLEA [Suspect]
     Indication: AGE-RELATED MACULAR DEGENERATION
     Dosage: PRN INTRAVITREAL
     Dates: start: 20121002
  2. LOPRESSOR (METOPROLOL TARTRATE) [Concomitant]

REACTIONS (2)
  - Endophthalmitis [None]
  - Staphylococcus test positive [None]
